FAERS Safety Report 20210485 (Version 1)
Quarter: 2021Q4

REPORT INFORMATION
  Report Type: Report from Study
  Country: US (occurrence: US)
  Receive Date: 20211221
  Receipt Date: 20211221
  Transmission Date: 20220303
  Serious: No
  Sender: FDA-Public Use
  Company Number: US-Ipsen Biopharmaceuticals, Inc.-2021-32229

PATIENT
  Age: 33 Year
  Sex: Male

DRUGS (1)
  1. SOMATULINE DEPOT [Suspect]
     Active Substance: LANREOTIDE ACETATE
     Indication: Acromegaly
     Route: 058
     Dates: start: 2015

REACTIONS (8)
  - Injection site pruritus [Unknown]
  - Injection site mass [Unknown]
  - Diarrhoea [Unknown]
  - Constipation [Unknown]
  - Muscle spasms [Unknown]
  - Pain [Unknown]
  - Disturbance in attention [Unknown]
  - Irritability [Unknown]
